FAERS Safety Report 18250040 (Version 1)
Quarter: 2020Q3

REPORT INFORMATION
  Report Type: Spontaneous
  Country: JP (occurrence: JP)
  Receive Date: 20200909
  Receipt Date: 20200909
  Transmission Date: 20201103
  Serious: Yes (Hospitalization, Other)
  Sender: FDA-Public Use
  Company Number: JP-HQ SPECIALTY-JP-2020INT000113

PATIENT
  Age: 35 Week
  Sex: Male

DRUGS (11)
  1. MIDAZOLAM. [Suspect]
     Active Substance: MIDAZOLAM
     Dosage: REDUCED; CONTINUOUS INFUSION; DAY 0 (0.15 MG/KG,1 HR)
     Route: 042
  2. FUROSEMIDE. [Concomitant]
     Active Substance: FUROSEMIDE
     Indication: PRODUCT USED FOR UNKNOWN INDICATION
     Dosage: 2 MG/DOSE
     Route: 065
  3. AMIKACIN. [Concomitant]
     Active Substance: AMIKACIN
     Indication: PRODUCT USED FOR UNKNOWN INDICATION
     Dosage: 30 MG/DOSE (1 IN 12 HR)
     Route: 065
  4. DEXMEDETOMIDINE HYDROCHLORIDE. [Suspect]
     Active Substance: DEXMEDETOMIDINE HYDROCHLORIDE
     Indication: SEDATIVE THERAPY
     Dosage: CONTINUOUS INFUSION ON DAY 0 (0.4 UG/KG,1 HR)
     Route: 042
  5. MIDAZOLAM. [Suspect]
     Active Substance: MIDAZOLAM
     Indication: SEDATIVE THERAPY
     Dosage: CONTINUOUS INFUSION; DAY 0 (0.2 MG/KG,1 HR)
     Route: 042
  6. DEXMEDETOMIDINE HYDROCHLORIDE. [Suspect]
     Active Substance: DEXMEDETOMIDINE HYDROCHLORIDE
     Dosage: CONTINUOUS INFUSION ON DAY 1 (0.2 UG/KG,1 HR)
     Route: 042
  7. FAT EMULSION NOS [Concomitant]
     Active Substance: EGG PHOSPHOLIPIDS\SAFFLOWER OIL\SOYBEAN OIL
     Indication: PRODUCT USED FOR UNKNOWN INDICATION
     Dosage: 20% (ML/H); 0.4 ML/H
     Route: 065
  8. MIDAZOLAM. [Suspect]
     Active Substance: MIDAZOLAM
     Dosage: CONTINUOUS INFUSION; DAY 0 (0.3 MG/KG,1 HR)
     Route: 042
  9. DOPAMINE [Concomitant]
     Active Substance: DOPAMINE HYDROCHLORIDE
     Indication: PRODUCT USED FOR UNKNOWN INDICATION
     Dosage: DAY 0 (3.2 MG/KG,1 HR)
     Route: 065
  10. SODIUM BICARBONATE. [Concomitant]
     Active Substance: SODIUM BICARBONATE
     Indication: PRODUCT USED FOR UNKNOWN INDICATION
     Dosage: STRENGTH: 7%; 3 ML/DOSE
     Route: 065
  11. AMPICILLIN [Concomitant]
     Active Substance: AMPICILLIN
     Indication: PRODUCT USED FOR UNKNOWN INDICATION
     Dosage: 100 MG/DOSE (1 IN 8 HR)
     Route: 065

REACTIONS (4)
  - Product use issue [Unknown]
  - Postresuscitation encephalopathy [Unknown]
  - Drug interaction [Unknown]
  - Cardiogenic shock [Unknown]
